FAERS Safety Report 5777109-3 (Version None)
Quarter: 2008Q2

REPORT INFORMATION
  Report Type: 
  Country: None (occurrence: None)
  Receive Date: 20080617
  Receipt Date: 20080617
  Transmission Date: 20081010
  Serious: No
  Sender: FDA-Public Use
  Company Number: None

PATIENT
  Age: 88 Year
  Sex: Male
  Weight: 63 kg

DRUGS (4)
  1. LINEZOLID [Suspect]
     Indication: ENTEROCOCCAL INFECTION
     Dosage: 600MG PO Q12
     Route: 048
     Dates: start: 20080516, end: 20080529
  2. SPIRIVA [Concomitant]
  3. TAMSULOSIN HCL [Concomitant]
  4. HEP [Concomitant]

REACTIONS (1)
  - PLATELET COUNT DECREASED [None]
